FAERS Safety Report 5888228-5 (Version None)
Quarter: 2008Q3

REPORT INFORMATION
  Report Type: 
  Country: None (occurrence: None)
  Receive Date: 20080918
  Receipt Date: 20080909
  Transmission Date: 20090109
  Serious: Yes (Other)
  Sender: FDA-Public Use
  Company Number: GR-JNJFOC-20080902363

PATIENT
  Sex: Female

DRUGS (4)
  1. DOXORUBICIN HCL [Suspect]
     Indication: UTERINE CANCER
     Route: 042
  2. PACLITAXEL [Suspect]
     Indication: UTERINE CANCER
     Route: 042
  3. CARBOPLATIN [Suspect]
     Indication: UTERINE CANCER
     Route: 042
  4. ANTIEMETICS [Concomitant]
     Indication: ANTIEMETIC SUPPORTIVE CARE
     Route: 065

REACTIONS (1)
  - MYALGIA [None]
